FAERS Safety Report 24396078 (Version 2)
Quarter: 2024Q4

REPORT INFORMATION
  Report Type: Spontaneous
  Country: JP (occurrence: JP)
  Receive Date: 20241004
  Receipt Date: 20241018
  Transmission Date: 20250115
  Serious: No
  Sender: ELI LILLY AND COMPANY
  Company Number: JP-ELI_LILLY_AND_COMPANY-JP202409016082

PATIENT
  Age: 55 Year
  Sex: Female
  Weight: 66.5 kg

DRUGS (5)
  1. MOUNJARO [Suspect]
     Active Substance: TIRZEPATIDE
     Indication: Type 2 diabetes mellitus
     Dosage: 2.5 MG
     Route: 058
     Dates: start: 2023
  2. MOUNJARO [Suspect]
     Active Substance: TIRZEPATIDE
     Dosage: 5.0 MG
     Route: 058
     Dates: start: 2023
  3. NIFEDIPINE [Concomitant]
     Active Substance: NIFEDIPINE
     Dosage: 60 MG
  4. METHYLDOPA [Concomitant]
     Active Substance: METHYLDOPA
     Dosage: 500 MG
  5. METHYLDOPA [Concomitant]
     Active Substance: METHYLDOPA
     Dosage: 1000 MG

REACTIONS (1)
  - Blood glucose decreased [Unknown]
